FAERS Safety Report 17787673 (Version 1)
Quarter: 2020Q2

REPORT INFORMATION
  Report Type: Report from Study
  Country: GB (occurrence: GB)
  Receive Date: 20200515
  Receipt Date: 20200515
  Transmission Date: 20200714
  Serious: Yes (Death, Hospitalization)
  Sender: FDA-Public Use
  Company Number: GB-ROCHE-2588330

PATIENT
  Age: 76 Year
  Sex: Male

DRUGS (12)
  1. BEVACIZUMAB. [Suspect]
     Active Substance: BEVACIZUMAB
     Indication: MESOTHELIOMA
     Dosage: 400 MG/16 ML
     Route: 042
     Dates: start: 20191231, end: 20200324
  2. METRONIDAZOLE. [Concomitant]
     Active Substance: METRONIDAZOLE
  3. GENTAMICIN. [Concomitant]
     Active Substance: GENTAMICIN
  4. DOXYCYCLINE. [Concomitant]
     Active Substance: DOXYCYCLINE
  5. ATEZOLIZUMAB. [Suspect]
     Active Substance: ATEZOLIZUMAB
     Indication: MESOTHELIOMA
     Dosage: 1200 MG/ 20 ML
     Route: 042
     Dates: start: 20191231, end: 20200324
  6. CARBOPLATIN. [Suspect]
     Active Substance: CARBOPLATIN
     Indication: MESOTHELIOMA
     Dosage: 4-6 CYCLES
     Route: 042
     Dates: start: 20191231, end: 20200324
  7. AMOXICILLIN. [Concomitant]
     Active Substance: AMOXICILLIN
  8. PIPERACILLIN/TAZOBACTAM [Concomitant]
     Active Substance: PIPERACILLIN SODIUM\TAZOBACTAM SODIUM
  9. PEMETREXED. [Suspect]
     Active Substance: PEMETREXED
     Indication: MESOTHELIOMA
     Dosage: 4-6 CYCLES
     Route: 042
     Dates: start: 20191231, end: 20200303
  10. DEXAMETHASONE. [Concomitant]
     Active Substance: DEXAMETHASONE
  11. MIDAZOLAM. [Concomitant]
     Active Substance: MIDAZOLAM
  12. MORPHINE SULPHATE [Concomitant]
     Active Substance: MORPHINE SULFATE

REACTIONS (2)
  - Dyspnoea [Recovering/Resolving]
  - Abdominal pain [Fatal]

NARRATIVE: CASE EVENT DATE: 20200419
